FAERS Safety Report 9514030 (Version 1)
Quarter: 2013Q3

REPORT INFORMATION
  Report Type: Spontaneous
  Country: US (occurrence: US)
  Receive Date: 20130910
  Receipt Date: 20130910
  Transmission Date: 20140515
  Serious: No
  Sender: FDA-Public Use
  Company Number: US-TEVA-431419USA

PATIENT
  Age: 22 Year
  Sex: Female
  Weight: 59.47 kg

DRUGS (1)
  1. PARAGARD 380A [Suspect]
     Indication: CONTRACEPTION
     Dates: start: 20130801, end: 20130829

REACTIONS (2)
  - Menometrorrhagia [Unknown]
  - Device expulsion [Recovered/Resolved]
